FAERS Safety Report 8832177 (Version 1)
Quarter: 2012Q4

REPORT INFORMATION
  Report Type: Report from Study
  Country: JP (occurrence: JP)
  Receive Date: 20121009
  Receipt Date: 20121009
  Transmission Date: 20130627
  Serious: Yes (Hospitalization)
  Sender: FDA-Public Use
  Company Number: JP-ROCHE-651628

PATIENT
  Age: 60 Year
  Sex: Female

DRUGS (18)
  1. ROACTEMRA [Suspect]
     Indication: RHEUMATOID ARTHRITIS
     Route: 041
     Dates: start: 20080718, end: 20080718
  2. ROACTEMRA [Suspect]
     Route: 041
     Dates: start: 20080812, end: 20080812
  3. ROACTEMRA [Suspect]
     Route: 041
     Dates: start: 20080917, end: 20080917
  4. ROACTEMRA [Suspect]
     Route: 041
     Dates: start: 20081014, end: 20081014
  5. ROACTEMRA [Suspect]
     Route: 041
     Dates: start: 20081112, end: 20081112
  6. ROACTEMRA [Suspect]
     Route: 041
     Dates: start: 20081209, end: 20081209
  7. ROACTEMRA [Suspect]
     Route: 041
     Dates: start: 20090106, end: 20090106
  8. ROACTEMRA [Suspect]
     Route: 041
     Dates: start: 20090303, end: 20090303
  9. ROACTEMRA [Suspect]
     Route: 041
     Dates: start: 20090331, end: 20090331
  10. ROACTEMRA [Suspect]
     Route: 041
     Dates: start: 20090428, end: 20090428
  11. ROACTEMRA [Suspect]
     Route: 041
     Dates: start: 20090526, end: 20090526
  12. ROACTEMRA [Suspect]
     Route: 041
     Dates: start: 20090623, end: 20090623
  13. ROACTEMRA [Suspect]
     Route: 041
     Dates: start: 20090721, end: 20090721
  14. METHOTREXATE [Suspect]
     Indication: RHEUMATOID ARTHRITIS
     Dosage: DOSE FORM: ORAL FORMULATION (NOT OTHERWISE SPECIFIED)
     Route: 048
  15. JUVELA N [Concomitant]
     Dosage: DOSE FORM: ORAL FORMULATION (NOT OTHERWISE SPECIFIED)
     Route: 048
  16. AZUNOL [Concomitant]
     Dosage: DRUG REPORTED: AZUNOL GARGLE LIQUID (SODIUM GUALENATE HYDRATE),
     Route: 049
  17. HYALEIN [Concomitant]
     Dosage: DRUG REPORTED AS SODIUM HYALURONATE, ROUTE: INTRAOCULAR.
     Route: 047
  18. FOLIAMIN [Concomitant]
     Route: 048
     Dates: end: 20090803

REACTIONS (4)
  - Upper respiratory tract inflammation [Recovering/Resolving]
  - None [Recovering/Resolving]
  - White blood cell count decreased [Recovered/Resolved]
  - Gallbladder cancer [Not Recovered/Not Resolved]
